FAERS Safety Report 12127154 (Version 2)
Quarter: 2016Q1

REPORT INFORMATION
  Report Type: Report from Study
  Country: DE (occurrence: DE)
  Receive Date: 20160229
  Receipt Date: 20160329
  Transmission Date: 20160526
  Serious: Yes (Hospitalization)
  Sender: FDA-Public Use
  Company Number: DE-BIOGEN-2016BI00193733

PATIENT
  Age: 68 Year
  Sex: Male

DRUGS (1)
  1. AVONEX [Suspect]
     Active Substance: INTERFERON BETA-1A
     Indication: MULTIPLE SCLEROSIS
     Route: 030
     Dates: start: 200908

REACTIONS (10)
  - Laboratory test abnormal [Unknown]
  - Post procedural complication [Not Recovered/Not Resolved]
  - Blood testosterone decreased [Unknown]
  - Tissue polypeptide antigen increased [Unknown]
  - Blood cholesterol increased [Unknown]
  - White blood cells urine positive [Not Recovered/Not Resolved]
  - C-reactive protein decreased [Unknown]
  - Total cholesterol/HDL ratio decreased [Unknown]
  - Benign prostatic hyperplasia [Not Recovered/Not Resolved]
  - Red blood cells urine positive [Not Recovered/Not Resolved]

NARRATIVE: CASE EVENT DATE: 2012
